FAERS Safety Report 20911244 (Version 2)
Quarter: 2022Q3

REPORT INFORMATION
  Report Type: Spontaneous
  Country: US (occurrence: US)
  Receive Date: 20220603
  Receipt Date: 20220727
  Transmission Date: 20221027
  Serious: Yes (Other)
  Sender: FDA-Public Use
  Company Number: US-PFIZER INC-202200771849

PATIENT
  Age: 63 Year
  Sex: Female

DRUGS (1)
  1. PREMARIN [Suspect]
     Active Substance: ESTROGENS, CONJUGATED
     Dosage: UNK
     Route: 067

REACTIONS (6)
  - Vulvovaginal mycotic infection [Recovered/Resolved]
  - Burn of internal organs [Unknown]
  - Condition aggravated [Unknown]
  - Vulvovaginal pain [Unknown]
  - Fatigue [Unknown]
  - Malaise [Unknown]
